FAERS Safety Report 14747688 (Version 1)
Quarter: 2018Q2

REPORT INFORMATION
  Report Type: Report from Study
  Country: US (occurrence: US)
  Receive Date: 20180411
  Receipt Date: 20180411
  Transmission Date: 20180711
  Serious: Yes (Hospitalization, Other)
  Sender: FDA-Public Use
  Company Number: US-PRAGMA PHARMACEUTICALS, LLC-2018PRG00208

PATIENT
  Age: 73 Year
  Sex: Male
  Weight: 69.9 kg

DRUGS (6)
  1. INCB039110 (ITACITINIB) [Suspect]
     Active Substance: ITACITINIB
     Indication: MYELODYSPLASTIC SYNDROME
     Dosage: 300 MG, 1X/DAY
     Route: 048
     Dates: start: 20171113, end: 20171211
  2. VIDAZA [Suspect]
     Active Substance: AZACITIDINE
     Indication: MYELODYSPLASTIC SYNDROME
     Dosage: 140 MG, ON DAYS 1-5, 8 AND 9, EVERY 28 DAYS
     Route: 058
     Dates: start: 20171113, end: 20171211
  3. KEFLEX [Suspect]
     Active Substance: CEPHALEXIN
     Indication: URINARY TRACT INFECTION
     Dosage: 500 MG, 3X/DAY
     Route: 048
     Dates: start: 20180118, end: 20180121
  4. INCB039110 (ITACITINIB) [Suspect]
     Active Substance: ITACITINIB
     Dosage: 300 MG, 1X/DAY
     Route: 048
     Dates: start: 20171214, end: 20180111
  5. ACYCLOVIR. [Concomitant]
     Active Substance: ACYCLOVIR
     Dosage: UNK
     Dates: start: 201707
  6. VIDAZA [Suspect]
     Active Substance: AZACITIDINE
     Dosage: 140 MG, ON DAYS 1-5, 8 AND 9, EVERY 28 DAYS
     Route: 058
     Dates: start: 20171214, end: 20180111

REACTIONS (12)
  - Acute kidney injury [Not Recovered/Not Resolved]
  - Myelodysplastic syndrome transformation [None]
  - Confusional state [None]
  - Disorientation [None]
  - Azotaemia [Not Recovered/Not Resolved]
  - Tubulointerstitial nephritis [Not Recovered/Not Resolved]
  - Fatigue [None]
  - Lung consolidation [None]
  - Cough [None]
  - Transformation to acute myeloid leukaemia [None]
  - Febrile neutropenia [None]
  - Lower respiratory tract infection fungal [None]

NARRATIVE: CASE EVENT DATE: 201801
